FAERS Safety Report 9869945 (Version 1)
Quarter: 2014Q1

REPORT INFORMATION
  Report Type: Spontaneous
  Country: US (occurrence: None)
  Receive Date: 20140203
  Receipt Date: 20140203
  Transmission Date: 20141002
  Serious: Yes (Other)
  Sender: FDA-Public Use
  Company Number: SYM-2014-15954

PATIENT
  Sex: 0

DRUGS (1)
  1. CARAC [Suspect]
     Indication: PRODUCT USED FOR UNKNOWN INDICATION
     Route: 061
     Dates: start: 201401

REACTIONS (5)
  - Lymphadenopathy [None]
  - Lethargy [None]
  - Mouth ulceration [None]
  - Arthralgia [None]
  - Myalgia [None]
